FAERS Safety Report 7099752-4 (Version None)
Quarter: 2010Q4

REPORT INFORMATION
  Report Type: 
  Country: None (occurrence: None)
  Receive Date: 20101112
  Receipt Date: 20101101
  Transmission Date: 20110411
  Serious: Yes (Other)
  Sender: FDA-Public Use
  Company Number: DE-MYLANLABS-2010S1019985

PATIENT
  Age: 58 Year
  Sex: Male
  Weight: 86 kg

DRUGS (1)
  1. SIMVASTATIN [Suspect]
     Indication: HYPERCHOLESTEROLAEMIA
     Dosage: 20MG
     Dates: start: 20100101, end: 20100615

REACTIONS (1)
  - MUSCLE RUPTURE [None]
